FAERS Safety Report 25395510 (Version 2)
Quarter: 2025Q2

REPORT INFORMATION
  Report Type: Spontaneous
  Country: US (occurrence: US)
  Receive Date: 20250604
  Receipt Date: 20250610
  Transmission Date: 20250717
  Serious: Yes (Other)
  Sender: PFIZER
  Company Number: US-PFIZER INC-202500113339

PATIENT
  Age: 68 Year
  Sex: Female

DRUGS (2)
  1. XELJANZ XR [Suspect]
     Active Substance: TOFACITINIB CITRATE
  2. TALTZ [Concomitant]
     Active Substance: IXEKIZUMAB

REACTIONS (4)
  - Psoriatic arthropathy [Unknown]
  - Injury [Unknown]
  - Skin laceration [Unknown]
  - Eczema [Unknown]
